FAERS Safety Report 9511706 (Version 1)
Quarter: 2013Q1

REPORT INFORMATION
  Report Type: Spontaneous
  Country: US (occurrence: None)
  Receive Date: 20130305
  Receipt Date: 20130305
  Transmission Date: 20140127
  Serious: Yes (Other)
  Sender: FDA-Public Use
  Company Number: 163-21880-12103454

PATIENT
  Age: 47 Year
  Sex: Male
  Weight: 103.42 kg

DRUGS (5)
  1. REVLIMID (LENALIDOMIDE) (25 MILLIGRAM, CAPSULES) [Suspect]
     Indication: PLASMA CELL MYELOMA
     Dosage: 25 MG, 21 IN 21 D, PO
     Route: 048
     Dates: start: 20120801
  2. DEXAMETHASONE (DEXAMETHASONE) (UNKNOWN) [Concomitant]
  3. HYDROCORTISONE (HYDROCORTISONE) (UNKNOWN) [Concomitant]
  4. WARFARIN (WARFARIN) (UNKNOWN) [Concomitant]
  5. TYLENOL PM (TYLENOL PM) (UNKNOWN) [Concomitant]

REACTIONS (1)
  - Insomnia [None]
